FAERS Safety Report 5248576-9 (Version None)
Quarter: 2007Q1

REPORT INFORMATION
  Report Type: 
  Country: None (occurrence: None)
  Receive Date: 20070222
  Receipt Date: 20070208
  Transmission Date: 20070707
  Serious: Yes (Life-Threatening, Hospitalization)
  Sender: FDA-Public Use
  Company Number: RENA-12004

PATIENT
  Age: 58 Year
  Sex: Male
  Weight: 63 kg

DRUGS (18)
  1. RENAGEL [Suspect]
     Indication: HYPERPHOSPHATAEMIA
     Dosage: 1.5 G TID PO
     Route: 048
     Dates: start: 20060318, end: 20061014
  2. RENAGEL [Suspect]
     Indication: HYPERPHOSPHATAEMIA
     Dosage: 0.25 G BID PO
     Route: 048
     Dates: start: 20030815, end: 20030826
  3. RENAGEL [Suspect]
     Indication: HYPERPHOSPHATAEMIA
     Dosage: 0.5 G TID PO
     Route: 048
     Dates: start: 20030827, end: 20031205
  4. RENAGEL [Suspect]
     Indication: HYPERPHOSPHATAEMIA
     Dosage: 0.75 G TID PO
     Route: 048
     Dates: start: 20031206, end: 20040402
  5. RENAGEL [Suspect]
     Indication: HYPERPHOSPHATAEMIA
     Dosage: 1 G TID PO
     Route: 048
     Dates: start: 20040403, end: 20040514
  6. RENAGEL [Suspect]
     Indication: HYPERPHOSPHATAEMIA
     Dosage: 1.25 G TID PO
     Route: 048
     Dates: start: 20040515, end: 20060317
  7. ASPIRIN [Suspect]
     Dosage: 100 MG QD PO
     Route: 048
     Dates: start: 20011214
  8. KALIMATE [Suspect]
     Indication: HYPERKALAEMIA
     Dosage: 5 G TID PO
     Route: 048
     Dates: start: 20060218
  9. KALIMATE [Suspect]
     Indication: HYPERKALAEMIA
     Dosage: 5 G BID PO
     Route: 048
     Dates: start: 20050709, end: 20060217
  10. PURSENNID [Suspect]
     Indication: CONSTIPATION
     Dosage: 6TAB DAILY PO
     Route: 048
     Dates: start: 20060318
  11. PURSENNID [Suspect]
     Indication: CONSTIPATION
     Dosage: 3 TAB DAILY PO
     Route: 048
     Dates: start: 20030825, end: 20060317
  12. ALOSENN [Suspect]
     Indication: CONSTIPATION
     Dosage: 1 G DAILY PO
     Route: 048
     Dates: start: 20031229
  13. PANTOSIN (PANTETHINE) [Suspect]
     Indication: CONSTIPATION
     Dosage: 2 G DAILY PO
     Route: 048
     Dates: start: 20031229
  14. BLOPRESS [Concomitant]
  15. ARTIST [Concomitant]
  16. TAKEPRON [Concomitant]
  17. PURSENNID [Concomitant]
  18. ALOSENN [Concomitant]

REACTIONS (5)
  - BLOOD PRESSURE DECREASED [None]
  - CONSTIPATION [None]
  - FAECES HARD [None]
  - GASTROINTESTINAL NECROSIS [None]
  - LARGE INTESTINE PERFORATION [None]
